FAERS Safety Report 5366435-8 (Version None)
Quarter: 2007Q2

REPORT INFORMATION
  Report Type: 
  Country: None (occurrence: None)
  Receive Date: 20070622
  Receipt Date: 20070615
  Transmission Date: 20071010
  Serious: Yes (Other)
  Sender: FDA-Public Use
  Company Number: PHEH2007US04005

PATIENT
  Sex: Female

DRUGS (2)
  1. ZELNORM [Suspect]
     Indication: CONSTIPATION
     Dosage: 2 MG, QD, PRN
     Route: 048
     Dates: start: 20050801, end: 20060801
  2. FOSAMAX [Concomitant]

REACTIONS (3)
  - CARDIAC MURMUR [None]
  - MITRAL VALVE PROLAPSE [None]
  - MITRAL VALVE REPAIR [None]
